FAERS Safety Report 12897768 (Version 1)
Quarter: 2016Q4

REPORT INFORMATION
  Report Type: Other
  Country: None (occurrence: US)
  Receive Date: 20161031
  Receipt Date: 20161031
  Transmission Date: 20170207
  Serious: Yes (Other)
  Sender: FDA-Public Use
  Company Number: US-GUTHY-RENKER LLC-1059079

PATIENT
  Age: 52 Year
  Sex: Female

DRUGS (3)
  1. IT COSMETICS BYE BYE FOUNDATION SPF 50+ [Suspect]
     Active Substance: TITANIUM DIOXIDE\ZINC OXIDE
     Indication: PROPHYLAXIS AGAINST SOLAR RADIATION
     Route: 061
     Dates: start: 20160907, end: 20160928
  2. EPIPEN TO TREAT HER ALLERGIC REACTIONS [Concomitant]
  3. CHEMOTHERAPY, PROLIA INJECTIONS, NEXIUM, TOPAMAX, IMITREX [Concomitant]

REACTIONS (1)
  - Rash macular [Recovered/Resolved]

NARRATIVE: CASE EVENT DATE: 20160928
